FAERS Safety Report 4883392-9 (Version None)
Quarter: 2006Q1

REPORT INFORMATION
  Report Type: 
  Country: None (occurrence: None)
  Receive Date: 20060113
  Receipt Date: 20060103
  Transmission Date: 20060701
  Serious: Yes (Death, Hospitalization, Other)
  Sender: FDA-Public Use
  Company Number: 2005033541

PATIENT
  Age: 73 Year
  Weight: 70 kg

DRUGS (8)
  1. CELECOXIB (CELECOXIB) [Suspect]
     Indication: METASTASES TO BONE
     Dosage: 200 MG (100 MG, 2 IN 1 D), ORAL
     Route: 048
     Dates: start: 20050104
  2. DIGOXIN [Concomitant]
  3. LANSOPRAZOLE [Concomitant]
  4. RAMIPRIL [Concomitant]
  5. SENNA (SENNA) [Concomitant]
  6. FUROSEMIDE [Concomitant]
  7. ACETAMINOPHEN [Concomitant]
  8. MORPHINE SULFATE [Concomitant]

REACTIONS (5)
  - DUODENAL PERFORATION [None]
  - GASTRIC ULCER [None]
  - GASTROINTESTINAL HAEMORRHAGE [None]
  - HAEMATEMESIS [None]
  - PERFORATED ULCER [None]
